FAERS Safety Report 9633816 (Version 1)
Quarter: 2013Q4

REPORT INFORMATION
  Report Type: Spontaneous
  Country: US (occurrence: US)
  Receive Date: 20131021
  Receipt Date: 20131021
  Transmission Date: 20140711
  Serious: No
  Sender: FDA-Public Use
  Company Number: US-PFIZER INC-2013298922

PATIENT
  Age: 61 Year
  Sex: Female
  Weight: 54.4 kg

DRUGS (6)
  1. PREMPRO [Suspect]
     Indication: MENOPAUSAL SYMPTOMS
     Dosage: TAKES 0.45/1.5MG ONE DAY AND THE OTHER DAY SHE TAKES 0.625/2.5MG
  2. PREMPRO [Suspect]
     Dosage: TAKES 0.45/1.5MG ONE DAY AND THE OTHER DAY SHE TAKES 0.625/2.5MG
  3. AFEDITAB [Concomitant]
     Indication: BLOOD PRESSURE ABNORMAL
     Dosage: 30 MG, 1X/DAY
  4. ENALAPRIL [Concomitant]
     Indication: BLOOD PRESSURE ABNORMAL
     Dosage: 10 MG, 1X/DAY
  5. HYDROCHLOROTHIAZIDE [Concomitant]
     Indication: DIURETIC THERAPY
     Dosage: 25 MG, 1X/DAY
  6. PRAVASTATIN [Concomitant]
     Indication: BLOOD CHOLESTEROL ABNORMAL
     Dosage: 40 MG, 1X/DAY

REACTIONS (1)
  - Alopecia [Recovered/Resolved]
